FAERS Safety Report 6867309-3 (Version None)
Quarter: 2010Q3

REPORT INFORMATION
  Report Type: 
  Country: None (occurrence: None)
  Receive Date: 20100721
  Receipt Date: 20100721
  Transmission Date: 20110219
  Serious: Yes (Other)
  Sender: FDA-Public Use
  Company Number: None

PATIENT
  Age: 84 Year
  Sex: Female
  Weight: 79.3795 kg

DRUGS (2)
  1. RECLAST [Suspect]
     Indication: OSTEOPOROSIS
     Dosage: 5MG/100ML INFUSION ONCE PER YEAR
     Dates: start: 20090827
  2. RECLAST [Suspect]
     Indication: POSTMENOPAUSE
     Dosage: 5MG/100ML INFUSION ONCE PER YEAR
     Dates: start: 20090827

REACTIONS (5)
  - CHILLS [None]
  - JOINT STIFFNESS [None]
  - PAIN [None]
  - PAIN IN EXTREMITY [None]
  - PYREXIA [None]
